FAERS Safety Report 9118305 (Version 1)
Quarter: 2013Q1

REPORT INFORMATION
  Report Type: Spontaneous
  Country: US (occurrence: None)
  Receive Date: 20130221
  Receipt Date: 20130221
  Transmission Date: 20140127
  Serious: Yes (Other)
  Sender: FDA-Public Use
  Company Number: None

PATIENT
  Age: 66 Year
  Sex: Female
  Weight: 81.65 kg

DRUGS (1)
  1. LETROZOLE [Suspect]
     Indication: BLOOD OESTROGEN ABNORMAL
     Dosage: 1 TAB BY MOUTH DAILY?
     Route: 048
     Dates: start: 20130119, end: 20130120

REACTIONS (4)
  - Hallucination [None]
  - Middle insomnia [None]
  - Crying [None]
  - Anxiety [None]
